FAERS Safety Report 5309610-0 (Version None)
Quarter: 2007Q2

REPORT INFORMATION
  Report Type: 
  Country: None (occurrence: None)
  Receive Date: 20070427
  Receipt Date: 20070122
  Transmission Date: 20071010
  Serious: No
  Sender: FDA-Public Use
  Company Number: US-GLAXOSMITHKLINE-A0636516A

PATIENT
  Age: 59 Year
  Sex: Male

DRUGS (5)
  1. DEXTROAMPHETAMINE SULFATE [Suspect]
     Indication: DRUG USE FOR UNKNOWN INDICATION
     Dosage: 5MG VARIABLE DOSE
     Route: 048
  2. WELLBUTRIN [Concomitant]
  3. NORVASC [Concomitant]
  4. ANTIBIOTIC [Concomitant]
  5. CORTICOSTEROIDS [Concomitant]

REACTIONS (2)
  - BLOOD GLUCOSE DECREASED [None]
  - WRONG TECHNIQUE IN DRUG USAGE PROCESS [None]
